FAERS Safety Report 10498446 (Version 1)
Quarter: 2014Q4

REPORT INFORMATION
  Report Type: Report from Study
  Country: US (occurrence: US)
  Receive Date: 20141006
  Receipt Date: 20141006
  Transmission Date: 20150528
  Serious: Yes (Other)
  Sender: FDA-Public Use
  Company Number: US-BRISTOL-MYERS SQUIBB COMPANY-21440615

PATIENT
  Age: 68 Year
  Sex: Female
  Weight: 61.22 kg

DRUGS (1)
  1. ORENCIA [Suspect]
     Active Substance: ABATACEPT
     Indication: RHEUMATOID ARTHRITIS
     Dosage: LAST DOSE ON: 08SEP14.
     Route: 042

REACTIONS (4)
  - Chronic obstructive pulmonary disease [Unknown]
  - Eye disorder [Unknown]
  - Cerebrovascular accident [Unknown]
  - Asthma [Unknown]

NARRATIVE: CASE EVENT DATE: 201401
